FAERS Safety Report 6412757-9 (Version None)
Quarter: 2009Q4

REPORT INFORMATION
  Report Type: 
  Country: None (occurrence: None)
  Receive Date: 20091023
  Receipt Date: 20091012
  Transmission Date: 20100525
  Serious: Yes (Hospitalization, Other)
  Sender: FDA-Public Use
  Company Number: US-ELI_LILLY_AND_COMPANY-US200909003722

PATIENT
  Sex: Female

DRUGS (1)
  1. FORTEO [Suspect]
     Indication: OSTEOPOROSIS
     Dosage: 20 UG, DAILY (1/D)
     Dates: start: 20080701

REACTIONS (10)
  - ARTHRITIS [None]
  - BLOOD CALCIUM DECREASED [None]
  - ENDODONTIC PROCEDURE [None]
  - INSOMNIA [None]
  - ORAL DISORDER [None]
  - OSTEONECROSIS [None]
  - OSTEOPOROSIS [None]
  - SPINAL COMPRESSION FRACTURE [None]
  - SPINAL FRACTURE [None]
  - TOOTH EXTRACTION [None]
